FAERS Safety Report 7358277-9 (Version None)
Quarter: 2011Q1

REPORT INFORMATION
  Report Type: 
  Country: None (occurrence: None)
  Receive Date: 20110317
  Receipt Date: 20110308
  Transmission Date: 20110831
  Serious: Yes (Other)
  Sender: FDA-Public Use
  Company Number: US-SANOFI-AVENTIS-2011SA014978

PATIENT
  Age: 58 Year
  Sex: Male

DRUGS (3)
  1. PLAVIX [Suspect]
     Indication: STENT PLACEMENT
     Route: 048
     Dates: start: 20100401
  2. GEMFIBROZIL [Concomitant]
  3. VYTORIN [Concomitant]

REACTIONS (4)
  - IN-STENT CORONARY ARTERY RESTENOSIS [None]
  - CONDITION AGGRAVATED [None]
  - DYSPEPSIA [None]
  - DYSPNOEA [None]
